FAERS Safety Report 5258570-X (Version None)
Quarter: 2007Q1

REPORT INFORMATION
  Report Type: 
  Country: None (occurrence: None)
  Receive Date: 20070305
  Receipt Date: 20070220
  Transmission Date: 20070707
  Serious: Yes (Disabling)
  Sender: FDA-Public Use
  Company Number: OSCN-NO-0604S-0092

PATIENT
  Age: 33 Year
  Sex: Female

DRUGS (1)
  1. OMNISCAN [Suspect]
     Dosage: 41 ML, SINGLE DOSE, IV
     Route: 042
     Dates: start: 20041201, end: 20041201

REACTIONS (1)
  - FIBROSIS [None]
